FAERS Safety Report 16655259 (Version 2)
Quarter: 2019Q3

REPORT INFORMATION
  Report Type: Spontaneous
  Country: DE (occurrence: DE)
  Receive Date: 20190801
  Receipt Date: 20190820
  Transmission Date: 20191004
  Serious: Yes (Hospitalization)
  Sender: FDA-Public Use
  Company Number: DE-TEVA-2019-DE-1084703

PATIENT
  Age: 81 Year
  Sex: Male

DRUGS (12)
  1. IBUPROFEN. [Interacting]
     Active Substance: IBUPROFEN
     Indication: PAIN
     Dosage: 2 X 200MG
     Route: 065
  2. MAGALDRATE [Concomitant]
     Active Substance: MAGALDRATE
     Indication: GASTROOESOPHAGEAL REFLUX DISEASE
     Dosage: 3 X 1 SACHET
     Route: 065
  3. PHENPROCOUMON [Interacting]
     Active Substance: PHENPROCOUMON
     Indication: ANTICOAGULANT THERAPY
     Route: 065
  4. METHYLDOPA. [Concomitant]
     Active Substance: METHYLDOPA
     Indication: HYPERTENSION
     Dosage: 3 X 250MG
     Route: 065
  5. DICLOFENAC-RETARD [Suspect]
     Active Substance: DICLOFENAC
     Indication: PAIN
     Dosage: 1 X 100MG (RETARD)
     Route: 065
  6. THIORIDAZINE [Concomitant]
     Active Substance: THIORIDAZINE
     Dosage: 3 X 25MG
     Route: 065
  7. AMITRIPTYLINE [Concomitant]
     Active Substance: AMITRIPTYLINE
     Indication: DEPRESSION
     Route: 065
  8. HYDROCHLOROTHIAZIDE. [Concomitant]
     Active Substance: HYDROCHLOROTHIAZIDE
     Indication: HYPERTENSION
     Dosage: 2 X 25MG
     Route: 065
  9. ACETYLSALICYLIC ACID [Interacting]
     Active Substance: ASPIRIN
     Indication: PAIN
     Dosage: 2 X 500MG
     Route: 065
  10. LOPERAMIDE [Concomitant]
     Active Substance: LOPERAMIDE
     Dosage: 3 X 2MG
     Route: 065
  11. DIGOXIN. [Concomitant]
     Active Substance: DIGOXIN
     Indication: CARDIAC FAILURE
     Route: 065
  12. FLURAZEPAM [Concomitant]
     Active Substance: FLURAZEPAM HYDROCHLORIDE
     Indication: SLEEP DISORDER
     Route: 065

REACTIONS (3)
  - Haemorrhage intracranial [Unknown]
  - Drug interaction [Unknown]
  - Coma [Unknown]
